FAERS Safety Report 7038419-5 (Version None)
Quarter: 2010Q4

REPORT INFORMATION
  Report Type: 
  Country: None (occurrence: None)
  Receive Date: 20101011
  Receipt Date: 20100608
  Transmission Date: 20110411
  Serious: Yes (Other)
  Sender: FDA-Public Use
  Company Number: US-PFIZER INC-2010069530

PATIENT
  Sex: Male
  Weight: 69 kg

DRUGS (4)
  1. GABAPENTIN [Suspect]
     Indication: NEUROPATHY PERIPHERAL
     Dosage: 300 MG, UNK
     Route: 048
     Dates: start: 20070101
  2. ZOCOR [Concomitant]
     Indication: CARDIAC DISORDER
     Dosage: UNK
  3. ACCUPRIL [Concomitant]
     Indication: CARDIAC DISORDER
     Dosage: UNK
  4. ALPRAZOLAM [Concomitant]
     Indication: SLEEP DISORDER
     Dosage: UNK

REACTIONS (3)
  - BLOOD PRESSURE INCREASED [None]
  - HEART RATE INCREASED [None]
  - MALAISE [None]
